FAERS Safety Report 19681272 (Version 1)
Quarter: 2021Q3

REPORT INFORMATION
  Report Type: Spontaneous
  Country: US (occurrence: US)
  Receive Date: 20210810
  Receipt Date: 20210810
  Transmission Date: 20211014
  Serious: Yes (Other)
  Sender: FDA-Public Use
  Company Number: US-IGSA-SR10010168

PATIENT
  Age: 49 Year
  Sex: Female
  Weight: 92.25 kg

DRUGS (2)
  1. GAMUNEX?C [Suspect]
     Active Substance: HUMAN IMMUNOGLOBULIN G
     Indication: POLYNEUROPATHY
     Dosage: 90 G, TOTAL
     Route: 042
     Dates: start: 20190919, end: 20190920
  2. GAMUNEX?C [Suspect]
     Active Substance: HUMAN IMMUNOGLOBULIN G
     Dosage: 3 G, TOTAL
     Route: 042
     Dates: start: 20190919, end: 20190920

REACTIONS (1)
  - Headache [Unknown]

NARRATIVE: CASE EVENT DATE: 20190919
